FAERS Safety Report 22636391 (Version 1)
Quarter: 2023Q2

REPORT INFORMATION
  Report Type: Spontaneous
  Country: US (occurrence: None)
  Receive Date: 20230621
  Receipt Date: 20230621
  Transmission Date: 20230721
  Serious: Yes (Death)
  Sender: FDA-Public Use
  Company Number: None

PATIENT
  Age: 65 Year
  Sex: Male

DRUGS (12)
  1. EPCLUSA [Suspect]
     Active Substance: SOFOSBUVIR\VELPATASVIR
     Indication: Product used for unknown indication
     Dosage: FREQUENCY : DAILY;?
     Route: 048
     Dates: start: 20230525, end: 20230613
  2. ASPIRIN [Concomitant]
     Active Substance: ASPIRIN
  3. AMIODARONE [Concomitant]
     Active Substance: AMIODARONE
  4. BACTROBAN [Concomitant]
     Active Substance: MUPIROCIN\MUPIROCIN CALCIUM
  5. ELIQUIS [Concomitant]
     Active Substance: APIXABAN
  6. LASIX [Concomitant]
     Active Substance: FUROSEMIDE
  7. LEVOTHYROXINE [Concomitant]
     Active Substance: LEVOTHYROXINE
  8. LISINOPRIL [Concomitant]
     Active Substance: LISINOPRIL
  9. NIZORAL [Concomitant]
     Active Substance: KETOCONAZOLE
  10. NORCO [Concomitant]
     Active Substance: ACETAMINOPHEN\HYDROCODONE BITARTRATE
  11. TOPROL XL [Concomitant]
     Active Substance: METOPROLOL SUCCINATE
  12. TRIAMCINOLONE [Concomitant]
     Active Substance: TRIAMCINOLONE

REACTIONS (1)
  - Death [None]

NARRATIVE: CASE EVENT DATE: 20230614
